FAERS Safety Report 5401976-6 (Version None)
Quarter: 2007Q3

REPORT INFORMATION
  Report Type: 
  Country: None (occurrence: None)
  Receive Date: 20070727
  Receipt Date: 20070712
  Transmission Date: 20080115
  Serious: Yes (Death)
  Sender: FDA-Public Use
  Company Number: 2007S1006461

PATIENT
  Age: 60 Year
  Sex: Male

DRUGS (2)
  1. PHENYTOIN SODIUM [Suspect]
     Indication: CONVULSION PROPHYLAXIS
     Dosage: 150 MG;TWICE A DAY; ORAL
     Route: 048
  2. VALPROATE SODIUM [Concomitant]

REACTIONS (5)
  - ANTICONVULSANT DRUG LEVEL ABOVE THERAPEUTIC [None]
  - COMA [None]
  - DIABETIC KETOACIDOSIS [None]
  - DRUG INEFFECTIVE [None]
  - MULTI-ORGAN FAILURE [None]
